FAERS Safety Report 6544112-5 (Version None)
Quarter: 2010Q1

REPORT INFORMATION
  Report Type: 
  Country: None (occurrence: None)
  Receive Date: 20100119
  Receipt Date: 20100119
  Transmission Date: 20100710
  Serious: No
  Sender: FDA-Public Use
  Company Number: None

PATIENT
  Sex: Female
  Weight: 58.9676 kg

DRUGS (1)
  1. LOVENOX [Suspect]

REACTIONS (3)
  - DRUG DOSE OMISSION [None]
  - INJECTION SITE REACTION [None]
  - MUSCLE SPASMS [None]
